FAERS Safety Report 7633198-2 (Version None)
Quarter: 2011Q3

REPORT INFORMATION
  Report Type: 
  Country: None (occurrence: None)
  Receive Date: 20110725
  Receipt Date: 20110714
  Transmission Date: 20111222
  Serious: Yes (Hospitalization)
  Sender: FDA-Public Use
  Company Number: JP-ROCHE-777102

PATIENT
  Sex: Female
  Weight: 53.1 kg

DRUGS (11)
  1. ALENDRONATE SODIUM [Concomitant]
     Route: 048
     Dates: start: 20100908
  2. TOCILIZUMAB [Suspect]
     Route: 058
     Dates: start: 20110107, end: 20110426
  3. PREDNISOLONE [Suspect]
     Indication: RHEUMATOID ARTHRITIS
     Route: 048
     Dates: start: 20100622
  4. CYTOTEC [Concomitant]
     Route: 048
     Dates: start: 20110108
  5. LOXOPROFEN SODIUM [Suspect]
     Indication: RHEUMATOID ARTHRITIS
     Route: 048
     Dates: start: 20110108
  6. CANDESARTAN CILEXETIL [Concomitant]
     Route: 048
     Dates: start: 20101201
  7. TOCILIZUMAB [Suspect]
     Indication: RHEUMATOID ARTHRITIS
     Route: 058
     Dates: start: 20100720
  8. FAMOTIDINE [Concomitant]
     Route: 048
     Dates: start: 20090519
  9. FELBINAC [Concomitant]
     Dosage: DOSE FORM:TAPE, NOTE:PROPER QUANTITY AND PROPERLY
     Route: 061
     Dates: start: 20101026
  10. PLACEBO [Suspect]
     Indication: RHEUMATOID ARTHRITIS
     Route: 042
     Dates: start: 20100720
  11. INDOMETHACIN [Concomitant]
     Dosage: DOSAGE FORM: CREAM,NOTE:PROPER QUANTITY AND PROPERLY
     Route: 061
     Dates: start: 20110426

REACTIONS (2)
  - LOWER GASTROINTESTINAL HAEMORRHAGE [None]
  - DIVERTICULITIS [None]
